FAERS Safety Report 8214329-2 (Version None)
Quarter: 2012Q1

REPORT INFORMATION
  Report Type: 
  Country: None (occurrence: None)
  Receive Date: 20120316
  Receipt Date: 20120314
  Transmission Date: 20120608
  Serious: Yes (Other)
  Sender: FDA-Public Use
  Company Number: DE-BAYER-2012-025241

PATIENT
  Sex: Female
  Weight: 3.65 kg

DRUGS (1)
  1. BETASERON [Suspect]
     Route: 064

REACTIONS (1)
  - MECONIUM IN AMNIOTIC FLUID [None]
